FAERS Safety Report 8554333-8 (Version None)
Quarter: 2012Q3

REPORT INFORMATION
  Report Type: 
  Country: None (occurrence: None)
  Receive Date: 20120731
  Receipt Date: 20120717
  Transmission Date: 20120928
  Serious: No
  Sender: FDA-Public Use
  Company Number: PE-009507513-1207USA011992

PATIENT

DRUGS (1)
  1. PROPECIA [Suspect]
     Route: 048

REACTIONS (7)
  - MALE ORGASMIC DISORDER [None]
  - COGNITIVE DISORDER [None]
  - LIBIDO DECREASED [None]
  - GENITAL DISORDER MALE [None]
  - DEPRESSION [None]
  - ANXIETY [None]
  - ERECTILE DYSFUNCTION [None]
